FAERS Safety Report 15112825 (Version 2)
Quarter: 2018Q4

REPORT INFORMATION
  Report Type: Report from Study
  Country: None (occurrence: BR)
  Receive Date: 20180705
  Receipt Date: 20181230
  Transmission Date: 20190204
  Serious: Yes (Death, Hospitalization, Other)
  Sender: FDA-Public Use
  Company Number: BR-ABBVIE-18K-020-2408530-00

PATIENT
  Age: 59 Year
  Sex: Male
  Weight: 71 kg

DRUGS (7)
  1. BUSONID [Concomitant]
     Active Substance: BUDESONIDE
     Indication: RESPIRATORY DISORDER
  2. HUMIRA [Suspect]
     Active Substance: ADALIMUMAB
     Dosage: WEEK 1 LOADING DOSE
     Route: 058
     Dates: start: 201301, end: 201301
  3. ATORVASTATIN [Concomitant]
     Active Substance: ATORVASTATIN
     Indication: BLOOD CHOLESTEROL INCREASED
     Dates: start: 201701
  4. ALENIA [Concomitant]
     Active Substance: BUDESONIDE\FORMOTEROL FUMARATE
     Indication: RESPIRATORY DISORDER
  5. ROSUVASTATIN. [Concomitant]
     Active Substance: ROSUVASTATIN
     Indication: BLOOD CHOLESTEROL ABNORMAL
  6. HUMIRA [Suspect]
     Active Substance: ADALIMUMAB
     Indication: CROHN^S DISEASE
     Dosage: WEEK 0 LOADING DOSE
     Route: 058
     Dates: start: 20130108, end: 20130108
  7. HUMIRA [Suspect]
     Active Substance: ADALIMUMAB
     Dosage: MAINTENANCE DOSE
     Route: 058
     Dates: start: 2013, end: 2013

REACTIONS (17)
  - Blood triglycerides abnormal [Not Recovered/Not Resolved]
  - Fatigue [Recovering/Resolving]
  - Bone neoplasm [Fatal]
  - Pain in extremity [Not Recovered/Not Resolved]
  - Respiratory disorder [Not Recovered/Not Resolved]
  - Hyperaesthesia [Not Recovered/Not Resolved]
  - Vertebral column mass [Not Recovered/Not Resolved]
  - Neurofibroma [Unknown]
  - Pain in extremity [Recovering/Resolving]
  - Peritoneal disorder [Not Recovered/Not Resolved]
  - Malaise [Not Recovered/Not Resolved]
  - Burning sensation [Recovering/Resolving]
  - Dyspnoea [Not Recovered/Not Resolved]
  - Neoplasm malignant [Fatal]
  - Spinal pain [Not Recovered/Not Resolved]
  - Abdominal distension [Not Recovered/Not Resolved]
  - Pulmonary mass [Not Recovered/Not Resolved]

NARRATIVE: CASE EVENT DATE: 201806
